FAERS Safety Report 4278386-0 (Version None)
Quarter: 2004Q1

REPORT INFORMATION
  Report Type: 
  Country: None (occurrence: None)
  Receive Date: 20040123
  Receipt Date: 20040120
  Transmission Date: 20041129
  Serious: Yes (Other)
  Sender: FDA-Public Use
  Company Number: JP-ROCHE-356352

PATIENT
  Age: 85 Year
  Sex: Male

DRUGS (11)
  1. NICARDIPINE HCL [Suspect]
     Indication: BLOOD PRESSURE INCREASED
     Route: 042
  2. FENTANYL [Concomitant]
     Indication: ANAESTHESIA
     Route: 065
  3. PROPOFOL [Concomitant]
     Indication: ANAESTHESIA
     Route: 065
  4. VECURONIUM [Concomitant]
     Indication: ANAESTHESIA
  5. NITROGLYCERIN [Concomitant]
     Route: 062
  6. SIGMART [Concomitant]
     Dosage: GIVEN BY CONTINUOUS INFUSION, 4MG/HR
  7. DOPAMINE HCL [Concomitant]
     Dosage: GIVEN BY CONTINUOUS INFUSION
  8. SEVOFLURANE [Concomitant]
     Indication: ANAESTHESIA
  9. OXYGEN [Concomitant]
     Indication: ANAESTHESIA
  10. AIR [Concomitant]
     Indication: ANAESTHESIA
  11. ROPIVACAINE [Concomitant]
     Dosage: 6 MLS OF A 0.375% SOLUTION WAS ADMINISTERED PRIOR TO THE OPERATION VIA EPIDURAL CATHETER,.
     Route: 008

REACTIONS (3)
  - ATRIAL FIBRILLATION [None]
  - DRUG INEFFECTIVE [None]
  - HEART RATE INCREASED [None]
